FAERS Safety Report 8836150 (Version 1)
Quarter: 2012Q4

REPORT INFORMATION
  Report Type: 
  Country: FR (occurrence: FR)
  Receive Date: 20121011
  Receipt Date: 20121011
  Transmission Date: 20130627
  Serious: Yes (Hospitalization)
  Sender: FDA-Public Use
  Company Number: FR-BAXTER-2012BAX018883

PATIENT
  Age: 0 Year
  Sex: Female
  Weight: 1.19 kg

DRUGS (17)
  1. OLICLINOMEL [Suspect]
     Indication: DRUG EXPOSURE VIA MOTHER
     Route: 064
     Dates: start: 20120326
  2. MIDAZOLAM [Suspect]
     Indication: DRUG EXPOSURE VIA MOTHER
     Route: 064
     Dates: start: 20120304
  3. MIDAZOLAM [Suspect]
     Route: 064
     Dates: start: 20120317
  4. SUFENTANIL [Suspect]
     Indication: DRUG EXPOSURE VIA MOTHER
     Route: 064
     Dates: start: 20120304
  5. SUFENTANIL [Suspect]
     Route: 064
     Dates: start: 20120317
  6. SUFENTANIL [Suspect]
     Dosage: BOLUS
     Route: 064
     Dates: start: 20120318, end: 20120318
  7. ATRACURIUM [Suspect]
     Indication: DRUG EXPOSURE VIA MOTHER
     Route: 064
     Dates: start: 20120304
  8. TAZOCILLINE [Suspect]
     Indication: DRUG EXPOSURE VIA MOTHER
     Route: 064
     Dates: start: 20120316, end: 20120320
  9. CELESTENE [Suspect]
     Indication: DRUG EXPOSURE VIA MOTHER
     Route: 064
     Dates: start: 20120316
  10. KETAMINE [Suspect]
     Indication: DRUG EXPOSURE VIA MOTHER
     Route: 064
     Dates: start: 20120317
  11. PERFALGAN [Suspect]
     Indication: DRUG EXPOSURE VIA MOTHER
     Route: 064
     Dates: start: 20120324
  12. TRACTOCILE [Suspect]
     Indication: DRUG EXPOSURE VIA MOTHER
     Route: 064
     Dates: start: 20120324
  13. ZOPHREN [Suspect]
     Indication: DRUG EXPOSURE VIA MOTHER
     Route: 064
     Dates: start: 20120326
  14. INEXIUM [Suspect]
     Indication: DRUG EXPOSURE VIA MOTHER
     Route: 064
     Dates: start: 20120326
  15. LOVENOX [Suspect]
     Indication: DRUG EXPOSURE VIA MOTHER
     Dosage: 40
     Route: 064
     Dates: start: 20120326
  16. TAGAMET [Suspect]
     Indication: DRUG EXPOSURE VIA MOTHER
     Route: 064
     Dates: start: 20120426, end: 20120426
  17. EMLA [Suspect]
     Indication: DRUG EXPOSURE VIA MOTHER
     Route: 064
     Dates: start: 20120426, end: 20120426

REACTIONS (6)
  - Foetal growth restriction [Recovering/Resolving]
  - Infantile apnoeic attack [Recovered/Resolved]
  - Feeding disorder neonatal [Recovered/Resolved]
  - Device related sepsis [Recovered/Resolved]
  - Foetal exposure during pregnancy [Unknown]
  - Blood bilirubin unconjugated [Unknown]
